FAERS Safety Report 6232536-5 (Version None)
Quarter: 2009Q2

REPORT INFORMATION
  Report Type: 
  Country: None (occurrence: None)
  Receive Date: 20090617
  Receipt Date: 20090604
  Transmission Date: 20091009
  Serious: Yes (Hospitalization, Other)
  Sender: FDA-Public Use
  Company Number: FR-ELI_LILLY_AND_COMPANY-FR200901002806

PATIENT
  Age: 74 Year
  Sex: Female
  Weight: 88 kg

DRUGS (14)
  1. FORTEO [Suspect]
     Indication: OSTEOPOROSIS
     Dosage: 20 UG, DAILY (1/D)
     Route: 058
     Dates: start: 20080422
  2. METHOTREXATE [Concomitant]
     Indication: RHEUMATOID ARTHRITIS
     Dosage: 10 MG, WEEKLY (1/W)
     Dates: start: 19920101
  3. CORTANCYL [Concomitant]
     Indication: RHEUMATOID ARTHRITIS
     Dosage: 15 MG, UNKNOWN
     Route: 065
  4. CORTANCYL [Concomitant]
     Dosage: 1 MG, DAILY (1/D)
     Route: 065
  5. SPECIAFOLDINE [Concomitant]
     Dosage: 5 MG, WEEKLY (1/W)
     Route: 065
  6. DI-ANTALVIC [Concomitant]
     Dosage: 6 D/F, DAILY (1/D)
  7. UVEDOSE [Concomitant]
     Dosage: 100000 IU, OTHER (EVERY 15 DAYS)
     Route: 065
  8. KARDEGIC [Concomitant]
     Dosage: 75 MG, DAILY (1/D)
  9. CANDESARTAN CILEXETIL [Concomitant]
     Dosage: 8 MG, DAILY (1/D)
     Route: 065
  10. SERETIDE [Concomitant]
     Dosage: 1 D/F (PUFF), 2/D
  11. INIPOMP [Concomitant]
     Dosage: 40 MG, DAILY (1/D)
  12. SINGULAIR [Concomitant]
     Dosage: 10 MG, DAILY (1/D)
  13. LEXOMIL [Concomitant]
     Dosage: 0.5 D/F, DAILY (1/D)
  14. LIPANOR [Concomitant]
     Dosage: 1 D/F, DAILY (1/D)

REACTIONS (2)
  - INTERSTITIAL LUNG DISEASE [None]
  - PLEURISY [None]
